FAERS Safety Report 9215695 (Version 2)
Quarter: 2013Q2

REPORT INFORMATION
  Report Type: Spontaneous
  Country: KR (occurrence: KR)
  Receive Date: 20130408
  Receipt Date: 20130418
  Transmission Date: 20140414
  Serious: Yes (Other)
  Sender: FDA-Public Use
  Company Number: KR-RANBAXY-2013RR-66855

PATIENT
  Age: 27 Year
  Sex: Female

DRUGS (2)
  1. MINOCYCLINE [Suspect]
     Indication: ACNE
     Dosage: UNK
     Route: 065
  2. TETRACYCLINE [Suspect]
     Indication: ACNE
     Dosage: 250 MG, BID, INTERMITTENTLY OVER A PERIOD OF 14 MONTHS
     Route: 048

REACTIONS (1)
  - Lupus-like syndrome [Recovered/Resolved]
